FAERS Safety Report 4707550-9 (Version None)
Quarter: 2005Q3

REPORT INFORMATION
  Report Type: 
  Country: None (occurrence: None)
  Receive Date: 20050706
  Receipt Date: 20050131
  Transmission Date: 20060218
  Serious: Yes (Disabling)
  Sender: FDA-Public Use
  Company Number: ES-JNJFOC-20050200774

PATIENT
  Age: 66 Year
  Sex: Female
  Weight: 83 kg

DRUGS (8)
  1. TOPAMAX [Suspect]
     Indication: PHANTOM PAIN
     Route: 065
  2. NEURONTIN [Concomitant]
     Indication: PAIN
     Route: 065
  3. DURAGESIC-100 [Concomitant]
     Indication: PAIN
     Route: 065
  4. AMITRIPTILINE [Concomitant]
     Indication: PAIN
     Route: 065
  5. CLONAZEPAM [Concomitant]
     Indication: PAIN
     Dosage: 3-5 DROPS DAILY
     Route: 065
  6. TRANSILIUM [Concomitant]
     Indication: DEPRESSION
     Route: 065
  7. AREMIS [Concomitant]
     Indication: DEPRESSION
     Route: 065
  8. VALIUM [Concomitant]
     Indication: DEPRESSION
     Route: 065

REACTIONS (5)
  - ASTIGMATISM [None]
  - BLINDNESS [None]
  - HYPERMETROPIA [None]
  - MACULAR DEGENERATION [None]
  - MACULOPATHY [None]
